FAERS Safety Report 10056580 (Version 2)
Quarter: 2019Q1

REPORT INFORMATION
  Report Type: Spontaneous
  Country: US (occurrence: US)
  Receive Date: 20140403
  Receipt Date: 20190208
  Transmission Date: 20190417
  Serious: No
  Sender: FDA-Public Use
  Company Number: US-PFIZER INC-2014093042

PATIENT
  Age: 56 Year
  Sex: Female

DRUGS (6)
  1. GABAPENTIN. [Suspect]
     Active Substance: GABAPENTIN
     Dosage: UNK
  2. LODINE [Suspect]
     Active Substance: ETODOLAC
     Dosage: UNK
  3. NEURONTIN [Suspect]
     Active Substance: GABAPENTIN
     Dosage: UNK
  4. CODEINE [Suspect]
     Active Substance: CODEINE
     Dosage: UNK
  5. FESOTERODINE [Suspect]
     Active Substance: FESOTERODINE
     Dosage: UNK
  6. IODINE. [Suspect]
     Active Substance: IODINE

REACTIONS (1)
  - Drug hypersensitivity [Unknown]
